FAERS Safety Report 15337141 (Version 2)
Quarter: 2018Q3

REPORT INFORMATION
  Report Type: Spontaneous
  Country: US (occurrence: US)
  Receive Date: 20180831
  Receipt Date: 20180905
  Transmission Date: 20181010
  Serious: Yes (Hospitalization)
  Sender: FDA-Public Use
  Company Number: US-ROCHE-2124750

PATIENT
  Age: 42 Year
  Sex: Female

DRUGS (2)
  1. XOLAIR [Suspect]
     Active Substance: OMALIZUMAB
     Dosage: 5 DAYS
     Route: 058
     Dates: start: 20180625
  2. XOLAIR [Suspect]
     Active Substance: OMALIZUMAB
     Indication: IDIOPATHIC URTICARIA
     Route: 058
     Dates: start: 20170509, end: 20180624

REACTIONS (8)
  - Paralysis [Recovered/Resolved]
  - Migraine [Not Recovered/Not Resolved]
  - Pain [Recovering/Resolving]
  - Dizziness [Recovering/Resolving]
  - Visual impairment [Recovered/Resolved]
  - Urticaria [Unknown]
  - Cervicogenic headache [Recovering/Resolving]
  - Malaise [Recovering/Resolving]

NARRATIVE: CASE EVENT DATE: 20180624
